FAERS Safety Report 8377032-4 (Version None)
Quarter: 2012Q2

REPORT INFORMATION
  Report Type: 
  Country: None (occurrence: None)
  Receive Date: 20120522
  Receipt Date: 20120518
  Transmission Date: 20120825
  Serious: Yes (Other)
  Sender: FDA-Public Use
  Company Number: US-PFIZER INC-2012121486

PATIENT
  Sex: Female
  Weight: 113.4 kg

DRUGS (3)
  1. ALLEGRA [Concomitant]
     Dosage: UNK
  2. LYRICA [Suspect]
     Indication: FIBROMYALGIA
     Dosage: 150 MG, 1X/DAY
     Route: 048
  3. LYRICA [Suspect]
     Indication: NEUROPATHY PERIPHERAL

REACTIONS (8)
  - ALOPECIA [None]
  - OEDEMA PERIPHERAL [None]
  - AUTOIMMUNE DISORDER [None]
  - BALANCE DISORDER [None]
  - DIZZINESS [None]
  - JOINT SWELLING [None]
  - MADAROSIS [None]
  - FEELING ABNORMAL [None]
